FAERS Safety Report 18972393 (Version 1)
Quarter: 2021Q1

REPORT INFORMATION
  Report Type: Spontaneous
  Country: US (occurrence: US)
  Receive Date: 20210304
  Receipt Date: 20210304
  Transmission Date: 20210420
  Serious: Yes (Other)
  Sender: FDA-Public Use
  Company Number: None

PATIENT
  Age: 30 Year
  Sex: Female
  Weight: 45.45 kg

DRUGS (5)
  1. ZOLADEX 3.6MG [Concomitant]
  2. FULVESTRANT 250MG/5ML SOLUTION [Concomitant]
  3. CALCIUM 600MG TABLETS [Concomitant]
  4. TAMOXIFEN CITRATE 20MG TABLETS [Concomitant]
     Active Substance: TAMOXIFEN CITRATE
  5. LAPATINIB DITOSYLATE [Suspect]
     Active Substance: LAPATINIB DITOSYLATE
     Indication: BREAST CANCER
     Dosage: ?          OTHER FREQUENCY:5 TABLETS PER DAY;?
     Route: 048
     Dates: start: 20210113, end: 20210225

REACTIONS (5)
  - Rash [None]
  - Diarrhoea [None]
  - Dermatitis [None]
  - Toxicity to various agents [None]
  - Oedema peripheral [None]

NARRATIVE: CASE EVENT DATE: 20210302
